FAERS Safety Report 10045462 (Version 1)
Quarter: 2014Q1

REPORT INFORMATION
  Report Type: Spontaneous
  Country: US (occurrence: US)
  Receive Date: 20140328
  Receipt Date: 20140328
  Transmission Date: 20141002
  Serious: No
  Sender: FDA-Public Use
  Company Number: US-ASTRAZENECA-2014SE16638

PATIENT
  Age: 64 Year
  Sex: Male

DRUGS (4)
  1. BRILINTA [Suspect]
     Route: 048
  2. BETA BLOCKER [Suspect]
     Route: 065
  3. 5 MEDS (UNSPECIFIED) [Concomitant]
  4. 4 MEDS (UNSPECIFIED [Concomitant]

REACTIONS (1)
  - Tremor [Unknown]
